FAERS Safety Report 17257680 (Version 1)
Quarter: 2020Q1

REPORT INFORMATION
  Report Type: Spontaneous
  Country: US (occurrence: US)
  Receive Date: 20200109
  Receipt Date: 20200109
  Transmission Date: 20200409
  Serious: No
  Sender: FDA-Public Use
  Company Number: None

PATIENT
  Age: 16 Year
  Sex: Male
  Weight: 58.5 kg

DRUGS (1)
  1. OSELTAMIVIR PHOSPHATE CAPSULES, USP 75MG [Suspect]
     Active Substance: OSELTAMIVIR PHOSPHATE
     Indication: INFLUENZA
     Dosage: ?          QUANTITY:1 CAPSULE(S);?
     Route: 048
     Dates: start: 20200107, end: 20200109

REACTIONS (3)
  - Headache [None]
  - Vomiting [None]
  - Insomnia [None]

NARRATIVE: CASE EVENT DATE: 20200108
